FAERS Safety Report 10140593 (Version 1)
Quarter: 2014Q2

REPORT INFORMATION
  Report Type: Spontaneous
  Country: US (occurrence: US)
  Receive Date: 20140429
  Receipt Date: 20140429
  Transmission Date: 20141212
  Serious: No
  Sender: FDA-Public Use
  Company Number: US-B.I. PHARMACEUTICALS,INC./RIDGEFIELD-2014-BI-18090BP

PATIENT
  Age: 71 Year
  Sex: Male
  Weight: 118 kg

DRUGS (3)
  1. COMBIVENT [Suspect]
     Indication: BRONCHITIS
     Dosage: STRENGTH: 20 MCG / 100 MCG; DAILY DOSE: 40 MCG/200 MCG
     Route: 055
     Dates: start: 20140401
  2. FLUTICASONE [Concomitant]
     Indication: NASAL CONGESTION
     Dosage: FORMULATION: NASAL SPRAY
     Route: 055
  3. ALLEGRA-D [Concomitant]
     Indication: NASAL CONGESTION
     Route: 048

REACTIONS (2)
  - Off label use [Unknown]
  - Drug ineffective [Unknown]
